FAERS Safety Report 5347480-5 (Version None)
Quarter: 2007Q2

REPORT INFORMATION
  Report Type: 
  Country: None (occurrence: None)
  Receive Date: 20070606
  Receipt Date: 20070529
  Transmission Date: 20071010
  Serious: Yes (Hospitalization)
  Sender: FDA-Public Use
  Company Number: PHRM2007FR01544

PATIENT
  Age: 74 Year
  Sex: Male

DRUGS (10)
  1. VOLTAREN [Suspect]
     Indication: SCIATICA
     Dosage: 50 MG, TID
     Route: 048
     Dates: start: 20070124, end: 20070130
  2. INIPOMP [Concomitant]
     Indication: SCIATICA
     Dosage: 20 MG, QD
     Route: 048
     Dates: start: 20070124
  3. LAMALINE [Concomitant]
     Indication: SCIATICA
     Dosage: 4 DF/DAY
     Dates: start: 20070124
  4. METHOCARBAMOL [Concomitant]
     Indication: SCIATICA
     Dosage: 500 MG, BID
     Dates: start: 20070124
  5. DIAMICRON [Concomitant]
     Dosage: 2 DF/DAY
     Route: 048
  6. TENORMIN [Interacting]
     Dosage: 50 MG, UNK
     Route: 048
  7. ALLOPURINOL [Concomitant]
     Dosage: 1 DF, QD
     Route: 048
  8. TRIATEC [Interacting]
     Dosage: UNK, UNK
     Route: 048
     Dates: end: 20070131
  9. TRIATEC [Interacting]
     Dosage: 10 MG/DAY
     Dates: start: 20070131
  10. ZOCOR [Concomitant]
     Dosage: 1 DF, QD
     Route: 048

REACTIONS (9)
  - BLOOD CREATINE PHOSPHOKINASE INCREASED [None]
  - BUNDLE BRANCH BLOCK RIGHT [None]
  - GAMMA-GLUTAMYLTRANSFERASE INCREASED [None]
  - HYPERTENSION [None]
  - NAUSEA [None]
  - NEPHROANGIOSCLEROSIS [None]
  - OXYGEN SATURATION DECREASED [None]
  - PETIT MAL EPILEPSY [None]
  - VASCULAR RESISTANCE SYSTEMIC INCREASED [None]
